FAERS Safety Report 6238843-4 (Version None)
Quarter: 2009Q2

REPORT INFORMATION
  Report Type: 
  Country: None (occurrence: None)
  Receive Date: 20090622
  Receipt Date: 20090616
  Transmission Date: 20091009
  Serious: Yes (Hospitalization)
  Sender: FDA-Public Use
  Company Number: NL-JNJFOC-20030803156

PATIENT
  Sex: Male

DRUGS (3)
  1. TRISPORAL [Suspect]
     Indication: TINEA PEDIS
     Route: 048
  2. PULMICORT-100 [Concomitant]
     Route: 055
  3. BETAMETHASON [Concomitant]

REACTIONS (2)
  - MEDICATION ERROR [None]
  - PANCREATITIS [None]
